FAERS Safety Report 8501938-6 (Version None)
Quarter: 2012Q3

REPORT INFORMATION
  Report Type: 
  Country: None (occurrence: None)
  Receive Date: 20120711
  Receipt Date: 20120618
  Transmission Date: 20120928
  Serious: No
  Sender: FDA-Public Use
  Company Number: CA-JNJFOC-20120610197

PATIENT
  Sex: Female
  Weight: 55.9 kg

DRUGS (3)
  1. IMURAN [Concomitant]
     Route: 065
  2. REMICADE [Suspect]
     Indication: CROHN'S DISEASE
     Dosage: 36 TH INFUSION
     Route: 042
     Dates: start: 20060901
  3. PROZAC [Concomitant]
     Route: 065

REACTIONS (1)
  - CHRONIC SINUSITIS [None]
